FAERS Safety Report 17121326 (Version 1)
Quarter: 2019Q4

REPORT INFORMATION
  Report Type: Spontaneous
  Country: US (occurrence: US)
  Receive Date: 20191205
  Receipt Date: 20191205
  Transmission Date: 20200122
  Serious: Yes (Other)
  Sender: FDA-Public Use
  Company Number: None

PATIENT
  Age: 72 Year
  Sex: Male

DRUGS (10)
  1. DULOXETINE CAP 60 MG [Concomitant]
  2. IRBESARTAN TAB 150 MG [Concomitant]
  3. ALFUZOSIN TAB 10 MG ER [Concomitant]
  4. ELIQUIS TAB 2.5 MG [Concomitant]
  5. METOPROLOL TAR TAB 50 MG [Concomitant]
  6. OLMESARTAN MEDOX TAB 40 MG [Concomitant]
  7. ATORVASTATIN TAB 40 MG [Concomitant]
     Active Substance: ATORVASTATIN
  8. MULTIPLE VIT TAB [Concomitant]
  9. OXYBUTYNIN TAB 10 MG ER [Concomitant]
  10. GLATIRAMER [Suspect]
     Active Substance: GLATIRAMER
     Indication: MULTIPLE SCLEROSIS
     Dosage: ?          OTHER FREQUENCY:3 TIMES WEEKLY;?
     Route: 058
     Dates: start: 20180530

REACTIONS (1)
  - Intracranial aneurysm [None]
